FAERS Safety Report 9678948 (Version 2)
Quarter: 2014Q1

REPORT INFORMATION
  Report Type: Spontaneous
  Country: DE (occurrence: DE)
  Receive Date: 20131108
  Receipt Date: 20140219
  Transmission Date: 20141002
  Serious: Yes (Other)
  Sender: FDA-Public Use
  Company Number: DE-BRISTOL-MYERS SQUIBB COMPANY-19743780

PATIENT
  Age: 48 Year
  Sex: Male
  Weight: 110 kg

DRUGS (16)
  1. BYETTA [Suspect]
     Indication: TYPE 2 DIABETES MELLITUS
     Dosage: CUMULATIVE DOSE:31700 MICROGRAM
     Route: 058
     Dates: start: 200805, end: 201310
  2. BYETTA [Suspect]
     Indication: OBESITY
     Dosage: CUMULATIVE DOSE:31700 MICROGRAM
     Route: 058
     Dates: start: 200805, end: 201310
  3. METHOTREXATE [Concomitant]
     Indication: RHEUMATOID ARTHRITIS
     Route: 058
  4. EBRANTIL [Concomitant]
     Indication: HYPERTENSION
     Route: 048
  5. VERAPAMIL [Concomitant]
     Indication: HYPERTENSION
     Route: 048
  6. SIMVASTATIN [Concomitant]
     Indication: HYPERLIPIDAEMIA
     Route: 048
  7. METFORMIN [Concomitant]
     Indication: TYPE 2 DIABETES MELLITUS
     Route: 048
  8. L-THYROXINE [Concomitant]
     Indication: HYPOTHYROIDISM
  9. OMEPRAZOL [Concomitant]
  10. DICLOFENAC [Concomitant]
  11. NOVALGIN [Concomitant]
  12. METAMIZOLE [Concomitant]
  13. VERAPAMIL [Concomitant]
  14. CLEXANE [Concomitant]
     Route: 058
  15. LIORESAL [Concomitant]
  16. RIVOTRIL [Concomitant]

REACTIONS (1)
  - Myelitis [Unknown]
